FAERS Safety Report 16908715 (Version 1)
Quarter: 2019Q4

REPORT INFORMATION
  Report Type: Spontaneous
  Country: US (occurrence: US)
  Receive Date: 20190820
  Receipt Date: 20190820
  Transmission Date: 20200122
  Serious: No
  Sender: FDA-Public Use
  Company Number: None

PATIENT

DRUGS (1)
  1. MORPHINE SULFATE 20MG/ML (MS 20/ML) [Suspect]
     Active Substance: MORPHINE SULFATE
     Route: 048

REACTIONS (5)
  - Transcription medication error [None]
  - Product dispensing error [None]
  - Incorrect dose administered [None]
  - Somnolence [None]
  - General physical health deterioration [None]

NARRATIVE: CASE EVENT DATE: 2018
